FAERS Safety Report 9012206 (Version 1)
Quarter: 2013Q1

REPORT INFORMATION
  Report Type: Spontaneous
  Country: JP (occurrence: JP)
  Receive Date: 20130114
  Receipt Date: 20130114
  Transmission Date: 20140127
  Serious: Yes (Other)
  Sender: FDA-Public Use
  Company Number: JP-PFIZER INC-2012112347

PATIENT
  Sex: Male

DRUGS (5)
  1. LYRICA [Suspect]
     Indication: INTERVERTEBRAL DISC PROTRUSION
     Dosage: 75 MG, 1X/DAY
     Route: 048
     Dates: start: 201011
  2. LYRICA [Suspect]
     Indication: INTERVERTEBRAL DISC PROTRUSION
     Dosage: 450MG DAILY OR 525MG DAILY
  3. LYRICA [Suspect]
     Dosage: 600 MG, 1X/DAY
     Route: 048
     Dates: start: 20120720
  4. NORVASC [Concomitant]
  5. CETILO [Concomitant]

REACTIONS (12)
  - Hallucination, auditory [Unknown]
  - Rash [Unknown]
  - Erythema [Unknown]
  - Blister [Unknown]
  - Pain [Unknown]
  - Insomnia [Unknown]
  - Dysphagia [Unknown]
  - Trismus [Unknown]
  - Tongue biting [Unknown]
  - Ear pain [Recovering/Resolving]
  - Skin swelling [Unknown]
  - Alopecia areata [Unknown]
